FAERS Safety Report 4484726-X (Version None)
Quarter: 2004Q4

REPORT INFORMATION
  Report Type: 
  Country: None (occurrence: None)
  Receive Date: 20041022
  Receipt Date: 20041006
  Transmission Date: 20050328
  Serious: Yes (Death)
  Sender: FDA-Public Use
  Company Number: 2004AL000551

PATIENT
  Age: 50 Year

DRUGS (3)
  1. ALPRAZOLAM [Suspect]
     Dosage: PO
     Route: 048
  2. ACETAMINOPHEN + CODEINE PHOSPHATE ORAL SOLUTION USP, 120 MG/12 MG PER [Suspect]
     Dosage: PO
     Route: 048
  3. ETHANOL [Suspect]
     Dosage: PO
     Route: 048

REACTIONS (2)
  - DRUG ABUSER [None]
  - MULTIPLE DRUG OVERDOSE [None]
